FAERS Safety Report 15236609 (Version 1)
Quarter: 2018Q3

REPORT INFORMATION
  Report Type: Spontaneous
  Country: US (occurrence: US)
  Receive Date: 20180709
  Receipt Date: 20180709
  Transmission Date: 20181010
  Serious: Yes (Hospitalization)
  Sender: FDA-Public Use
  Company Number: None

PATIENT
  Age: 60 Year
  Sex: Female
  Weight: 64.86 kg

DRUGS (1)
  1. LIDOCAINE 1% [Suspect]
     Active Substance: LIDOCAINE
     Indication: CARTILAGE INJURY
     Dates: start: 20180502

REACTIONS (2)
  - Staphylococcal infection [None]
  - Arthritis infective [None]

NARRATIVE: CASE EVENT DATE: 20180502
